FAERS Safety Report 4327482-8 (Version None)
Quarter: 2004Q1

REPORT INFORMATION
  Report Type: 
  Country: None (occurrence: None)
  Receive Date: 20040330
  Receipt Date: 20040330
  Transmission Date: 20041129
  Serious: No
  Sender: FDA-Public Use
  Company Number: None

PATIENT
  Age: 69 Year
  Sex: Female
  Weight: 76.2043 kg

DRUGS (1)
  1. OMNIPAQUE 300 [Suspect]
     Indication: SCAN WITH CONTRAST
     Dosage: 300 IV X 1
     Route: 042

REACTIONS (1)
  - RENAL FAILURE ACUTE [None]
